FAERS Safety Report 24837879 (Version 1)
Quarter: 2025Q1

REPORT INFORMATION
  Report Type: Spontaneous
  Country: US (occurrence: US)
  Receive Date: 20250113
  Receipt Date: 20250113
  Transmission Date: 20250409
  Serious: No
  Sender: INCYTE
  Company Number: US-EVENT-001036

PATIENT

DRUGS (1)
  1. OPZELURA [Suspect]
     Active Substance: RUXOLITINIB PHOSPHATE
     Dosage: UNK, BID (APPLY A THIN LAYER TO AFFECTED AREA(S) ON THE FACE TWICE DAILY AS DIRECTED)
     Route: 061
     Dates: start: 202409

REACTIONS (1)
  - Headache [Unknown]
